FAERS Safety Report 5733330-1 (Version None)
Quarter: 2008Q2

REPORT INFORMATION
  Report Type: 
  Country: None (occurrence: None)
  Receive Date: 20080509
  Receipt Date: 20080502
  Transmission Date: 20081010
  Serious: Yes (Hospitalization, Other)
  Sender: FDA-Public Use
  Company Number: DE-GENENTECH-260259

PATIENT
  Age: 56 Year
  Sex: Male

DRUGS (5)
  1. MABTHERA [Suspect]
     Indication: B-CELL LYMPHOMA
     Dosage: UNK, UNKNOWN
     Route: 065
  2. CYCLOPHOSPHAMIDE [Suspect]
     Indication: B-CELL LYMPHOMA
     Dosage: UNK, UNKNOWN
     Route: 065
  3. DOXORUBICIN HCL [Suspect]
     Indication: B-CELL LYMPHOMA
     Dosage: UNK, UNKNOWN
     Route: 065
  4. PREDNISONE TAB [Suspect]
     Indication: B-CELL LYMPHOMA
     Dosage: UNK, UNKNOWN
     Route: 065
  5. VINCRISTINE [Suspect]
     Indication: B-CELL LYMPHOMA
     Dosage: UNK, UNKNOWN
     Route: 065

REACTIONS (1)
  - FISTULA [None]
